FAERS Safety Report 8236066-0 (Version None)
Quarter: 2012Q1

REPORT INFORMATION
  Report Type: 
  Country: None (occurrence: None)
  Receive Date: 20120327
  Receipt Date: 20120313
  Transmission Date: 20120608
  Serious: Yes (Other)
  Sender: FDA-Public Use
  Company Number: CO-AMGEN-COLSP2011067766

PATIENT
  Age: 49 Year
  Sex: Female

DRUGS (4)
  1. METHOTREXATE [Concomitant]
     Indication: ARTHRITIS
     Dosage: 2.5 UNIT UNKNOWN,EVERY 8 DAYS
     Route: 030
     Dates: start: 20060101
  2. ENBREL [Suspect]
     Indication: RHEUMATOID ARTHRITIS
     Dosage: 50 MG, WEEKLY
     Route: 058
     Dates: start: 20080609
  3. FOLIC ACID [Concomitant]
     Indication: ANAEMIA
     Dosage: 4 MG, WEEKLY
     Route: 048
     Dates: start: 20080101
  4. LEVOTHYROXINE SODIUM [Concomitant]
     Indication: THYROID DISORDER
     Dosage: EVERY 24 HOURS
     Route: 048
     Dates: start: 20060101

REACTIONS (3)
  - RHEUMATOID ARTHRITIS [None]
  - TUBERCULIN TEST POSITIVE [None]
  - DISEASE RECURRENCE [None]
